FAERS Safety Report 6746505-X (Version None)
Quarter: 2010Q2

REPORT INFORMATION
  Report Type: 
  Country: None (occurrence: None)
  Receive Date: 20100528
  Receipt Date: 20091023
  Transmission Date: 20101027
  Serious: No
  Sender: FDA-Public Use
  Company Number: US-ASTRAZENECA-2009SE32092

PATIENT
  Sex: Female

DRUGS (3)
  1. PRILOSEC OTC [Suspect]
     Indication: GASTROINTESTINAL ULCER
     Dosage: 2 TABLET, 2 /DAY FOR 1 DAY
     Route: 048
     Dates: start: 20091023, end: 20091023
  2. PRILOSEC OTC [Suspect]
     Dosage: 2 TABLET, 1 /DAY
     Route: 048
  3. VITAMIN D3 [Concomitant]

REACTIONS (2)
  - INAPPROPRIATE SCHEDULE OF DRUG ADMINISTRATION [None]
  - INCORRECT DOSE ADMINISTERED [None]
